FAERS Safety Report 6232722-4 (Version None)
Quarter: 2009Q2

REPORT INFORMATION
  Report Type: 
  Country: None (occurrence: None)
  Receive Date: 20090617
  Receipt Date: 20090609
  Transmission Date: 20091009
  Serious: Yes (Other)
  Sender: FDA-Public Use
  Company Number: DE-NOVOPROD-288120

PATIENT
  Sex: Male
  Weight: 142.5 kg

DRUGS (1)
  1. NORDITROPIN NORDIFLEX [Suspect]
     Indication: DRUG USE FOR UNKNOWN INDICATION
     Dosage: .2 MG, QD
     Route: 058
     Dates: start: 20060101, end: 20090212

REACTIONS (1)
  - PITUITARY TUMOUR [None]
